FAERS Safety Report 15365545 (Version 1)
Quarter: 2018Q3

REPORT INFORMATION
  Report Type: Spontaneous
  Country: US (occurrence: US)
  Receive Date: 20180831
  Receipt Date: 20180831
  Transmission Date: 20181010
  Serious: No
  Sender: FDA-Public Use
  Company Number: None

PATIENT
  Age: 41 Year
  Sex: Male

DRUGS (5)
  1. BUTALBITA [Concomitant]
  2. MAVYRET [Suspect]
     Active Substance: GLECAPREVIR\PIBRENTASVIR
     Indication: HEPATITIS C
     Dates: start: 20180809
  3. IBUPROFEN. [Concomitant]
     Active Substance: IBUPROFEN
  4. CAFFEINE NAPROXEN [Concomitant]
  5. ASPIRIN. [Concomitant]
     Active Substance: ASPIRIN

REACTIONS (1)
  - Headache [None]

NARRATIVE: CASE EVENT DATE: 20180809
